FAERS Safety Report 4893824-8 (Version None)
Quarter: 2006Q1

REPORT INFORMATION
  Report Type: 
  Country: None (occurrence: None)
  Receive Date: 20060127
  Receipt Date: 20051006
  Transmission Date: 20060701
  Serious: No
  Sender: FDA-Public Use
  Company Number: US-GLAXOSMITHKLINE-A0577346A

PATIENT
  Sex: Male

DRUGS (1)
  1. MEPRON [Suspect]
     Route: 048
     Dates: end: 20051006

REACTIONS (2)
  - GLOSSODYNIA [None]
  - PHARMACEUTICAL PRODUCT COMPLAINT [None]
